FAERS Safety Report 14343042 (Version 1)
Quarter: 2018Q1

REPORT INFORMATION
  Report Type: Spontaneous
  Country: US (occurrence: US)
  Receive Date: 20180102
  Receipt Date: 20180102
  Transmission Date: 20180509
  Serious: Yes (Life-Threatening, Hospitalization)
  Sender: FDA-Public Use
  Company Number: US-HERITAGE PHARMACEUTICALS-2017HTG00378

PATIENT
  Age: 44 Year
  Sex: Female

DRUGS (1)
  1. METHIMAZOLE. [Suspect]
     Active Substance: METHIMAZOLE
     Indication: HYPERTHYROIDISM
     Route: 065

REACTIONS (2)
  - Acute respiratory failure [Recovered/Resolved]
  - Pulmonary alveolar haemorrhage [Recovered/Resolved]
